FAERS Safety Report 5669976-9 (Version None)
Quarter: 2008Q1

REPORT INFORMATION
  Report Type: 
  Country: None (occurrence: None)
  Receive Date: 20080312
  Receipt Date: 20080229
  Transmission Date: 20080703
  Serious: Yes (Hospitalization)
  Sender: FDA-Public Use
  Company Number: 2008-00732

PATIENT
  Age: 70 Year
  Sex: Male
  Weight: 65 kg

DRUGS (3)
  1. VELCADE [Suspect]
     Indication: MULTIPLE MYELOMA
     Dosage: 1.30 MG/M2, INTRAVENOUS
     Route: 042
     Dates: start: 20080225
  2. DOXIL [Suspect]
     Indication: MULTIPLE MYELOMA
     Dosage: 30.00 MG/M2 INTRAVENOUS
     Route: 042
     Dates: start: 20080221
  3. DEXAMETHASONE TAB [Suspect]
     Indication: MULTIPLE MYELOMA
     Dosage: 40.00 MG, ORAL
     Route: 048
     Dates: start: 20080218

REACTIONS (3)
  - ABDOMINAL DISTENSION [None]
  - BLADDER DISTENSION [None]
  - DYSPNOEA [None]
